FAERS Safety Report 7106911-0 (Version None)
Quarter: 2010Q4

REPORT INFORMATION
  Report Type: 
  Country: None (occurrence: None)
  Receive Date: 20101116
  Receipt Date: 20101105
  Transmission Date: 20110411
  Serious: No
  Sender: FDA-Public Use
  Company Number: US-ABBOTT-10P-163-0683515-00

PATIENT
  Sex: Female

DRUGS (5)
  1. SIMCOR [Suspect]
     Indication: BLOOD TRIGLYCERIDES INCREASED
     Dosage: 2000/40 MG; AT HOUR OF SLEEP
     Route: 048
     Dates: start: 20100901
  2. SIMCOR [Suspect]
     Indication: HIGH DENSITY LIPOPROTEIN DECREASED
     Dosage: 500/20MG DAILY AT HOUR OF SLEEP
  3. SIMCOR [Suspect]
     Indication: LOW DENSITY LIPOPROTEIN INCREASED
  4. UNSPECIFIED HYPERTENSION MEDICICATION [Concomitant]
     Indication: HYPERTENSION
  5. UNSPECIFIED DEPRESSION MEDICICATION [Concomitant]
     Indication: DEPRESSION

REACTIONS (3)
  - FLUSHING [None]
  - INCORRECT DOSE ADMINISTERED [None]
  - WRONG DRUG ADMINISTERED [None]
